FAERS Safety Report 7502480-1 (Version None)
Quarter: 2011Q2

REPORT INFORMATION
  Report Type: 
  Country: None (occurrence: None)
  Receive Date: 20110525
  Receipt Date: 20110520
  Transmission Date: 20111010
  Serious: Yes (Other)
  Sender: FDA-Public Use
  Company Number: US-ASTRAZENECA-2011SE24290

PATIENT
  Age: 81 Year
  Sex: Male

DRUGS (8)
  1. POTASSIUM CHLORIDE [Suspect]
     Route: 065
  2. ENALAPRIL MALEATE [Suspect]
     Route: 065
  3. COUMADIN [Suspect]
     Route: 065
  4. MAALOX [Suspect]
     Route: 065
  5. NAMENDA [Suspect]
     Route: 065
  6. CRESTOR [Suspect]
     Route: 048
  7. LASIX [Suspect]
     Route: 065
  8. LANOXIN [Suspect]
     Route: 065

REACTIONS (8)
  - CARDIAC FAILURE [None]
  - NEUROPATHY PERIPHERAL [None]
  - UNDERWEIGHT [None]
  - CONSTIPATION [None]
  - BUNDLE BRANCH BLOCK LEFT [None]
  - BLADDER DILATATION [None]
  - DECREASED APPETITE [None]
  - GASTRIC DISORDER [None]
